FAERS Safety Report 21093178 (Version 1)
Quarter: 2022Q3

REPORT INFORMATION
  Report Type: Spontaneous
  Country: CN (occurrence: CN)
  Receive Date: 20220718
  Receipt Date: 20220718
  Transmission Date: 20221027
  Serious: Yes (Other)
  Sender: FDA-Public Use
  Company Number: CN-JNJFOC-20220730023

PATIENT
  Age: 1 Year
  Sex: Male
  Weight: 10 kg

DRUGS (2)
  1. CHILDRENS MOTRIN [Suspect]
     Active Substance: IBUPROFEN
     Indication: Pyrexia
     Dosage: MEDICATION - DOSES: 2?MEDICATION - DAYS: 1
     Route: 048
     Dates: start: 20220613, end: 20220615
  2. ACETAMINOPHEN [Suspect]
     Active Substance: ACETAMINOPHEN
     Indication: Pyrexia
     Dosage: DOSE: 0.80; DOSE UNIT: CAPSULE?MEDICATION - DOSES: 2?MEDICATION - DAYS: 1
     Route: 054
     Dates: start: 20220613, end: 20220615

REACTIONS (1)
  - Neutrophil count decreased [Unknown]

NARRATIVE: CASE EVENT DATE: 20220615
